FAERS Safety Report 25699606 (Version 1)
Quarter: 2025Q3

REPORT INFORMATION
  Report Type: Spontaneous
  Country: US (occurrence: US)
  Receive Date: 20250819
  Receipt Date: 20250819
  Transmission Date: 20251020
  Serious: No
  Sender: VIIV
  Company Number: US-VIIV HEALTHCARE- US2025AMR105742

PATIENT

DRUGS (4)
  1. CABENUVA [Interacting]
     Active Substance: CABOTEGRAVIR\RILPIVIRINE
     Indication: Product used for unknown indication
  2. CABENUVA [Interacting]
     Active Substance: CABOTEGRAVIR\RILPIVIRINE
  3. CABENUVA [Interacting]
     Active Substance: CABOTEGRAVIR\RILPIVIRINE
  4. LENACAPAVIR [Interacting]
     Active Substance: LENACAPAVIR
     Indication: Product used for unknown indication

REACTIONS (2)
  - Labelled drug-drug interaction medication error [Unknown]
  - Product use in unapproved therapeutic environment [Unknown]
